FAERS Safety Report 18964965 (Version 1)
Quarter: 2021Q1

REPORT INFORMATION
  Report Type: Spontaneous
  Country: CN (occurrence: CN)
  Receive Date: 20210303
  Receipt Date: 20210303
  Transmission Date: 20210420
  Serious: Yes (Hospitalization, Disabling)
  Sender: FDA-Public Use
  Company Number: CN-OTSUKA-2021_006242

PATIENT
  Age: 81 Year
  Sex: Female
  Weight: 80 kg

DRUGS (2)
  1. TORASEMIDE [Suspect]
     Active Substance: TORSEMIDE
     Indication: CARDIAC FAILURE ACUTE
     Dosage: 10 MG, BID
     Route: 048
     Dates: start: 20210202, end: 20210204
  2. SAMSCA [Suspect]
     Active Substance: TOLVAPTAN
     Indication: CARDIAC FAILURE ACUTE
     Dosage: 15 MG, QD
     Route: 048
     Dates: start: 20210202, end: 20210204

REACTIONS (3)
  - Hypokalaemia [Recovering/Resolving]
  - Product use in unapproved indication [Unknown]
  - Blood creatinine increased [Recovering/Resolving]

NARRATIVE: CASE EVENT DATE: 20210202
